FAERS Safety Report 8550044-3 (Version None)
Quarter: 2012Q3

REPORT INFORMATION
  Report Type: 
  Country: None (occurrence: None)
  Receive Date: 20120730
  Receipt Date: 20120719
  Transmission Date: 20120928
  Serious: Yes (Other)
  Sender: FDA-Public Use
  Company Number: JP-ASTRAZENECA-2012SE51516

PATIENT
  Age: 71 Year
  Sex: Female

DRUGS (8)
  1. WARFARIN SODIUM [Concomitant]
     Route: 048
     Dates: start: 20101117, end: 20120719
  2. ZETIA [Concomitant]
     Route: 048
     Dates: start: 20110214
  3. OMEPRAZOLE [Suspect]
     Indication: GASTROOESOPHAGEAL REFLUX DISEASE
     Dosage: DOSE UNKNOWN
     Route: 048
  4. CRESTOR [Concomitant]
     Route: 048
  5. NEXIUM [Suspect]
     Indication: GASTROOESOPHAGEAL REFLUX DISEASE
     Route: 048
     Dates: start: 20120618, end: 20120701
  6. RABEPRAZOLE SODIUM [Concomitant]
     Dosage: DOSE UNKNOWN
     Route: 065
  7. FAMOTIDINE [Concomitant]
     Dosage: DOSE UNKNOWN
     Route: 065
  8. OMEPRAZOLE [Concomitant]
     Dosage: DOSE UNKNOWN
     Route: 065

REACTIONS (3)
  - HYPOALBUMINAEMIA [None]
  - MALABSORPTION [None]
  - HYPOPROTEINAEMIA [None]
